FAERS Safety Report 17755639 (Version 1)
Quarter: 2020Q2

REPORT INFORMATION
  Report Type: Spontaneous
  Country: US (occurrence: US)
  Receive Date: 20200506
  Receipt Date: 20200506
  Transmission Date: 20200714
  Serious: Yes (Life-Threatening, Other)
  Sender: FDA-Public Use
  Company Number: None

PATIENT
  Age: 39 Year
  Sex: Female
  Weight: 69.75 kg

DRUGS (2)
  1. CLEAN AND CLEAR PERSA-GEL 10 [Suspect]
     Active Substance: BENZOYL PEROXIDE
     Indication: ACNE
     Dosage: ?          OTHER FREQUENCY:USED IT ONLY ONCE;?
     Route: 061
     Dates: start: 20200428, end: 20200428
  2. HYDROXYZINE [Concomitant]
     Active Substance: HYDROXYZINE HYDROCHLORIDE

REACTIONS (6)
  - Throat tightness [None]
  - Rash [None]
  - Eye swelling [None]
  - Dyspnoea [None]
  - Swelling face [None]
  - Erythema [None]

NARRATIVE: CASE EVENT DATE: 20200428
